FAERS Safety Report 6341101-0 (Version None)
Quarter: 2009Q3

REPORT INFORMATION
  Report Type: 
  Country: None (occurrence: None)
  Receive Date: 20090902
  Receipt Date: 20090902
  Transmission Date: 20100115
  Serious: Yes (Other)
  Sender: FDA-Public Use
  Company Number: None

PATIENT
  Sex: Female

DRUGS (1)
  1. FENTANYL-50 [Suspect]
     Indication: PAIN
     Dosage: APPLY ONE PATCH EVERY 72 HOURS
     Dates: start: 20090301

REACTIONS (4)
  - DEVICE LEAKAGE [None]
  - DYSPNOEA [None]
  - HEART RATE INCREASED [None]
  - PRODUCT QUALITY ISSUE [None]
